FAERS Safety Report 8565224 (Version 3)
Quarter: 2012Q4

REPORT INFORMATION
  Report Type: 
  Country: US (occurrence: US)
  Receive Date: 20120516
  Receipt Date: 20121124
  Transmission Date: 20130627
  Serious: Yes (Hospitalization)
  Sender: FDA-Public Use
  Company Number: US-BAYER-2012-046817

PATIENT
  Age: 29 Year
  Sex: Female
  Weight: 73.92 kg

DRUGS (6)
  1. YASMIN [Suspect]
     Indication: CONTRACEPTION
     Dosage: UNK
     Dates: start: 20040615, end: 20081114
  2. YASMIN [Suspect]
     Indication: CONTRACEPTION
     Dosage: UNK
     Dates: start: 20090622, end: 20091104
  3. OCELLA [Suspect]
     Indication: CONTRACEPTION
     Dosage: UNK
     Dates: start: 20040615, end: 20081114
  4. OCELLA [Suspect]
     Indication: CONTRACEPTION
     Dosage: UNK
     Dates: start: 20090622, end: 20091104
  5. ALUPENT [Concomitant]
     Dosage: UNK
     Route: 045
     Dates: start: 20070709
  6. ZITHROMAX [Concomitant]
     Dosage: UNK
     Route: 048
     Dates: start: 20070709

REACTIONS (10)
  - Cerebrovascular accident [None]
  - Injury [None]
  - Pain [None]
  - Emotional distress [None]
  - Anhedonia [None]
  - Amnesia [None]
  - Hypoaesthesia [None]
  - Pain [None]
  - Photosensitivity reaction [None]
  - Headache [None]
